FAERS Safety Report 6702356-3 (Version None)
Quarter: 2010Q2

REPORT INFORMATION
  Report Type: 
  Country: None (occurrence: None)
  Receive Date: 20100429
  Receipt Date: 20100415
  Transmission Date: 20101027
  Serious: Yes (Hospitalization)
  Sender: FDA-Public Use
  Company Number: US-ELI_LILLY_AND_COMPANY-US201004004693

PATIENT
  Sex: Female

DRUGS (1)
  1. FORTEO [Suspect]
     Dosage: UNK, UNK
     Dates: start: 20080101, end: 20100101

REACTIONS (4)
  - ABDOMINAL PAIN [None]
  - HEART RATE INCREASED [None]
  - PANCREATITIS [None]
  - POST PROCEDURAL COMPLICATION [None]
